FAERS Safety Report 8525006-2 (Version None)
Quarter: 2012Q3

REPORT INFORMATION
  Report Type: 
  Country: None (occurrence: None)
  Receive Date: 20120720
  Receipt Date: 20120709
  Transmission Date: 20120928
  Serious: Yes (Other)
  Sender: FDA-Public Use
  Company Number: US-JNJFOC-20120706014

PATIENT
  Age: 44 Year
  Sex: Female

DRUGS (2)
  1. IBUPROFEN [Concomitant]
     Indication: HEADACHE
     Dosage: AS NEEDED
     Route: 065
  2. LISTERINE TOTAL CARE ANTICAVITY MOUTHWASH [Suspect]
     Indication: DENTAL DISORDER PROPHYLAXIS
     Dosage: HALF CAP
     Route: 048
     Dates: start: 20120501, end: 20120501

REACTIONS (7)
  - LOSS OF CONSCIOUSNESS [None]
  - ANAEMIA [None]
  - DEHYDRATION [None]
  - BLOOD PRESSURE DECREASED [None]
  - MALAISE [None]
  - WEIGHT DECREASED [None]
  - MEDICATION RESIDUE [None]
